FAERS Safety Report 11692886 (Version 1)
Quarter: 2015Q4

REPORT INFORMATION
  Report Type: Spontaneous
  Country: GB (occurrence: GB)
  Receive Date: 20151103
  Receipt Date: 20151103
  Transmission Date: 20160304
  Serious: Yes (Life-Threatening, Hospitalization, Other)
  Sender: FDA-Public Use
  Company Number: GB-ACTAVIS-2015-21255

PATIENT
  Age: 49 Year
  Sex: Female
  Weight: 98 kg

DRUGS (1)
  1. CARBAMAZEPINE (UNKNOWN) [Suspect]
     Active Substance: CARBAMAZEPINE
     Indication: TEMPORAL LOBE EPILEPSY
     Dosage: 800 MG, BID
     Route: 048

REACTIONS (4)
  - Toxicity to various agents [Recovered/Resolved]
  - Nystagmus [Unknown]
  - Agranulocytosis [Recovered/Resolved]
  - Ataxia [Unknown]
